FAERS Safety Report 7175872-0 (Version None)
Quarter: 2010Q4

REPORT INFORMATION
  Report Type: 
  Country: None (occurrence: None)
  Receive Date: 20101220
  Receipt Date: 20100428
  Transmission Date: 20110411
  Serious: No
  Sender: FDA-Public Use
  Company Number: US-AMGEN-TCS399239

PATIENT

DRUGS (10)
  1. ENBREL [Suspect]
     Indication: PSORIATIC ARTHROPATHY
     Dosage: 50 MG, QWK
     Route: 058
     Dates: start: 20090722
  2. ENBREL [Suspect]
     Indication: PSORIASIS
  3. CLOBETASOL PROPIONATE [Concomitant]
     Dosage: .05 %, UNK
     Dates: start: 20090618
  4. PRAVASTATIN SODIUM [Concomitant]
     Dosage: 40 MG, QD
     Route: 048
  5. LETROZOLE [Concomitant]
     Dosage: 2.5 MG, QD
     Route: 048
  6. ATENOLOL [Concomitant]
     Dosage: 25 MG, UNK
     Route: 048
  7. MULTI-VITAMINS [Concomitant]
     Dosage: UNK UNK, QD
     Route: 048
  8. CALCIPOTRIENE [Concomitant]
     Dosage: .005 %, UNK
  9. LOVAZA [Concomitant]
     Dosage: UNK UNK, QD
     Route: 048
  10. CALCIUM [Concomitant]
     Dosage: 600 MG, BID
     Route: 048

REACTIONS (2)
  - BRONCHITIS [None]
  - DACTYLITIS [None]
